FAERS Safety Report 6557975-4 (Version None)
Quarter: 2010Q1

REPORT INFORMATION
  Report Type: 
  Country: None (occurrence: None)
  Receive Date: 20100126
  Receipt Date: 20100111
  Transmission Date: 20100710
  Serious: Yes (Other)
  Sender: FDA-Public Use
  Company Number: TRP_06578_2009

PATIENT
  Sex: Female

DRUGS (6)
  1. RIBAVIRIN [Suspect]
     Indication: HEPATITIS C
     Dosage: (1200 MG, DAILY ORAL)
     Route: 048
     Dates: start: 20090812
  2. PEGASYS [Suspect]
     Indication: HEPATITIS C
     Dosage: SEE IMAGE
     Route: 058
     Dates: start: 20090812, end: 20090101
  3. PEGASYS [Suspect]
     Indication: HEPATITIS C
     Dosage: SEE IMAGE
     Route: 058
     Dates: start: 20090101
  4. RIBASPHERE [Suspect]
     Indication: HEPATITIS C
     Dosage: (1000 MG, DAILY)
     Dates: start: 20090101
  5. PHENERGAN /00033002/ [Concomitant]
  6. INSULIN [Concomitant]

REACTIONS (11)
  - ALANINE AMINOTRANSFERASE INCREASED [None]
  - ASPARTATE AMINOTRANSFERASE INCREASED [None]
  - BLOOD COUNT ABNORMAL [None]
  - BLOOD GLUCOSE INCREASED [None]
  - DECREASED APPETITE [None]
  - HAEMOGLOBIN DECREASED [None]
  - INJECTION SITE WARMTH [None]
  - ORAL MUCOSAL DISCOLOURATION [None]
  - ORAL PAIN [None]
  - RASH PRURITIC [None]
  - WHITE BLOOD CELL COUNT DECREASED [None]
